FAERS Safety Report 15986877 (Version 5)
Quarter: 2019Q3

REPORT INFORMATION
  Report Type: Spontaneous
  Country: US (occurrence: US)
  Receive Date: 20190220
  Receipt Date: 20190905
  Transmission Date: 20191004
  Serious: Yes (Other)
  Sender: FDA-Public Use
  Company Number: US-ASTRAZENECA-2018SF21780

PATIENT
  Age: 631 Month
  Sex: Male
  Weight: 97.5 kg

DRUGS (19)
  1. PRILOSEC [Suspect]
     Active Substance: OMEPRAZOLE MAGNESIUM
     Indication: GASTROOESOPHAGEAL REFLUX DISEASE
     Route: 048
     Dates: start: 20000101, end: 20060101
  2. PANTOPRAZOLE [Suspect]
     Active Substance: PANTOPRAZOLE
     Indication: GASTROOESOPHAGEAL REFLUX DISEASE
     Dosage: GENERIC
     Route: 065
     Dates: start: 20150319, end: 20150403
  3. MELATONIN [Concomitant]
     Active Substance: MELATONIN
  4. DUONEB [Concomitant]
     Active Substance: ALBUTEROL SULFATE\IPRATROPIUM BROMIDE
  5. ATORVASTATIN [Concomitant]
     Active Substance: ATORVASTATIN
  6. SPIRIVA [Concomitant]
     Active Substance: TIOTROPIUM BROMIDE MONOHYDRATE
  7. PROTHROMBIN [Concomitant]
     Active Substance: PROTHROMBIN
  8. ENALAPRIL [Concomitant]
     Active Substance: ENALAPRIL
  9. LOSARTAN. [Concomitant]
     Active Substance: LOSARTAN
     Indication: HYPERTENSION
  10. HYZAAR [Concomitant]
     Active Substance: HYDROCHLOROTHIAZIDE\LOSARTAN POTASSIUM
  11. PRILOSEC [Suspect]
     Active Substance: OMEPRAZOLE MAGNESIUM
     Indication: GASTROOESOPHAGEAL REFLUX DISEASE
     Route: 048
     Dates: start: 20000101, end: 20070101
  12. VICODIN [Concomitant]
     Active Substance: ACETAMINOPHEN\HYDROCODONE BITARTRATE
  13. VIAGRA [Concomitant]
     Active Substance: SILDENAFIL CITRATE
  14. COZAAR [Concomitant]
     Active Substance: LOSARTAN POTASSIUM
  15. BENZONATATE. [Concomitant]
     Active Substance: BENZONATATE
  16. LIPITOR [Concomitant]
     Active Substance: ATORVASTATIN CALCIUM
  17. ASPIRIN. [Concomitant]
     Active Substance: ASPIRIN
  18. PERCOCET [Concomitant]
     Active Substance: ACETAMINOPHEN\OXYCODONE HYDROCHLORIDE
  19. PREDNISONE. [Concomitant]
     Active Substance: PREDNISONE

REACTIONS (3)
  - End stage renal disease [Unknown]
  - Chronic kidney disease [Not Recovered/Not Resolved]
  - Renal injury [Unknown]

NARRATIVE: CASE EVENT DATE: 200706
